FAERS Safety Report 22324558 (Version 1)
Quarter: 2023Q2

REPORT INFORMATION
  Report Type: Spontaneous
  Country: US (occurrence: None)
  Receive Date: 20230515
  Receipt Date: 20230515
  Transmission Date: 20230721
  Serious: Yes (Hospitalization)
  Sender: FDA-Public Use
  Company Number: None

PATIENT
  Sex: Female

DRUGS (2)
  1. CINACALCET HYDROCHLORIDE [Suspect]
     Active Substance: CINACALCET HYDROCHLORIDE
     Indication: Hyperparathyroidism primary
     Dosage: 30MG ONCE DAILY ORAL
     Route: 048
     Dates: start: 20220215
  2. ADEMPAS [Suspect]
     Active Substance: RIOCIGUAT

REACTIONS (1)
  - Gastrointestinal haemorrhage [None]
